FAERS Safety Report 18416855 (Version 5)
Quarter: 2025Q4

REPORT INFORMATION
  Report Type: Spontaneous
  Country: US (occurrence: US)
  Receive Date: 20201022
  Receipt Date: 20251230
  Transmission Date: 20260117
  Serious: Yes (Other)
  Sender: COOPERSURGICAL
  Company Number: US-COOPERSURGICAL, INC.-US-2020CPS002550

PATIENT
  Age: 31 Year
  Sex: Female
  Weight: 47.619 kg

DRUGS (1)
  1. PARAGARD T 380A [Suspect]
     Active Substance: COPPER
     Indication: Contraception
     Dosage: UNK
     Route: 015
     Dates: start: 20170921

REACTIONS (30)
  - Laparoscopy [Recovered/Resolved]
  - Device breakage [Not Recovered/Not Resolved]
  - Foreign body in urogenital tract [Not Recovered/Not Resolved]
  - Complication of device removal [Not Recovered/Not Resolved]
  - Embedded device [Not Recovered/Not Resolved]
  - Uterine perforation [Not Recovered/Not Resolved]
  - Device dislocation [Not Recovered/Not Resolved]
  - Anhedonia [Unknown]
  - Anxiety [Not Recovered/Not Resolved]
  - Loss of personal independence in daily activities [Unknown]
  - Emotional distress [Unknown]
  - Procedural nausea [Unknown]
  - Procedural haemorrhage [Recovered/Resolved]
  - Malaise [Unknown]
  - Scar [Not Recovered/Not Resolved]
  - Stress [Not Recovered/Not Resolved]
  - Procedural pain [Recovered/Resolved]
  - Depression [Unknown]
  - Abdominal discomfort [Not Recovered/Not Resolved]
  - Pain [Unknown]
  - Discomfort [Unknown]
  - Muscle spasms [Unknown]
  - Abnormal uterine bleeding [Unknown]
  - Pelvic pain [Unknown]
  - Heavy menstrual bleeding [Unknown]
  - Vaginal discharge [Unknown]
  - Menstruation irregular [Unknown]
  - Dyspareunia [Unknown]
  - Dysmenorrhoea [Unknown]
  - Pelvic adhesions [Recovered/Resolved]

NARRATIVE: CASE EVENT DATE: 20170921
